FAERS Safety Report 10207986 (Version 1)
Quarter: 2014Q2

REPORT INFORMATION
  Report Type: Spontaneous
  Country: US (occurrence: US)
  Receive Date: 20140530
  Receipt Date: 20140530
  Transmission Date: 20141212
  Serious: No
  Sender: FDA-Public Use
  Company Number: US-GLAXOSMITHKLINE-A1067288A

PATIENT
  Age: 76 Year
  Sex: Female

DRUGS (7)
  1. VENTOLIN [Suspect]
     Indication: DYSPNOEA
     Dosage: 1SPR TWICE PER DAY
     Route: 055
     Dates: start: 201312
  2. THYROXINE SODIUM [Concomitant]
  3. NIFEDIPINE [Concomitant]
  4. LABETALOL [Concomitant]
  5. LOSARTAN [Concomitant]
  6. TERAZOSIN [Concomitant]
  7. OMEPRAZOLE [Concomitant]

REACTIONS (2)
  - Oral discomfort [Recovered/Resolved]
  - Glossodynia [Unknown]
